FAERS Safety Report 12172150 (Version 2)
Quarter: 2016Q3

REPORT INFORMATION
  Report Type: Spontaneous
  Country: CA (occurrence: CA)
  Receive Date: 20160311
  Receipt Date: 20160929
  Transmission Date: 20161109
  Serious: Yes (Other)
  Sender: FDA-Public Use
  Company Number: CA-ACTELION-A-US2016-132491

PATIENT
  Age: 69 Year
  Sex: Male

DRUGS (17)
  1. NIASPAN [Concomitant]
     Active Substance: NIACIN
  2. OXYGEN. [Concomitant]
     Active Substance: OXYGEN
  3. ADALAT CC [Concomitant]
     Active Substance: NIFEDIPINE
  4. GABAPENTIN. [Concomitant]
     Active Substance: GABAPENTIN
  5. JANUVIA [Concomitant]
     Active Substance: SITAGLIPTIN PHOSPHATE
  6. PANTOPRAZOLE [Concomitant]
     Active Substance: PANTOPRAZOLE SODIUM
  7. ADCIRCA [Concomitant]
     Active Substance: TADALAFIL
  8. SPIRONOLACTONE. [Concomitant]
     Active Substance: SPIRONOLACTONE
  9. COQ10 [Concomitant]
     Active Substance: UBIDECARENONE
  10. OPSUMIT [Suspect]
     Active Substance: MACITENTAN
     Indication: PULMONARY HYPERTENSION
     Dosage: 10 MG, UNK
     Route: 048
  11. GLUMETZA [Concomitant]
     Active Substance: METFORMIN HYDROCHLORIDE
  12. ASA [Concomitant]
     Active Substance: ASPIRIN
  13. EZETROL [Concomitant]
     Active Substance: EZETIMIBE
  14. VITAMIN D [Concomitant]
     Active Substance: CHOLECALCIFEROL
  15. PRAVASTATIN. [Concomitant]
     Active Substance: PRAVASTATIN
  16. FUROSEMIDE. [Concomitant]
     Active Substance: FUROSEMIDE
  17. ULORIC [Concomitant]
     Active Substance: FEBUXOSTAT

REACTIONS (7)
  - Blood potassium decreased [Unknown]
  - Fatigue [Unknown]
  - Loss of consciousness [Unknown]
  - Asthenia [Unknown]
  - Mood altered [Unknown]
  - Quality of life decreased [Unknown]
  - Depressed mood [Unknown]
